FAERS Safety Report 5862379-3 (Version None)
Quarter: 2008Q3

REPORT INFORMATION
  Report Type: 
  Country: None (occurrence: None)
  Receive Date: 20080828
  Receipt Date: 20080821
  Transmission Date: 20090109
  Serious: Yes (Death, Hospitalization)
  Sender: FDA-Public Use
  Company Number: FR-BRISTOL-MYERS SQUIBB COMPANY-14236228

PATIENT
  Age: 66 Year
  Sex: Male

DRUGS (5)
  1. MITOMYCIN [Suspect]
     Indication: METASTASES TO LIVER
     Dosage: DOSE FORM=INJECTION
     Route: 042
     Dates: start: 20080521, end: 20080521
  2. MITOMYCIN [Suspect]
     Indication: METASTASES TO LUNG
     Dosage: DOSE FORM=INJECTION
     Route: 042
     Dates: start: 20080521, end: 20080521
  3. XELODA [Suspect]
     Indication: METASTASES TO LIVER
     Dosage: INITIATED ON 15MAY08.
     Route: 048
     Dates: start: 20080527, end: 20080527
  4. XELODA [Suspect]
     Indication: METASTASES TO LUNG
     Dosage: INITIATED ON 15MAY08.
     Route: 048
     Dates: start: 20080527, end: 20080527
  5. FLUOROURACIL [Concomitant]

REACTIONS (6)
  - BONE MARROW FAILURE [None]
  - CHEILITIS [None]
  - OESOPHAGITIS [None]
  - STOMATITIS [None]
  - SUPERINFECTION [None]
  - WEIGHT DECREASED [None]
